FAERS Safety Report 13304820 (Version 1)
Quarter: 2017Q1

REPORT INFORMATION
  Report Type: Spontaneous
  Country: US (occurrence: US)
  Receive Date: 20170307
  Receipt Date: 20170307
  Transmission Date: 20170428
  Serious: Yes (Hospitalization)
  Sender: FDA-Public Use
  Company Number: None

PATIENT
  Age: 70 Year
  Sex: Female

DRUGS (8)
  1. DIAZEPAM. [Concomitant]
     Active Substance: DIAZEPAM
  2. MONTELUKAST [Concomitant]
     Active Substance: MONTELUKAST SODIUM
  3. AMLODIPINE [Concomitant]
     Active Substance: AMLODIPINE BESYLATE
  4. FUROSEMIDE. [Concomitant]
     Active Substance: FUROSEMIDE
  5. CHOLECALCIFEROL [Concomitant]
     Active Substance: CHOLECALCIFEROL
  6. VITAMIN E [Concomitant]
     Active Substance: .ALPHA.-TOCOPHEROL
  7. CARVEDILOL. [Suspect]
     Active Substance: CARVEDILOL
     Route: 048
  8. DOXAZOSIN [Concomitant]
     Active Substance: DOXAZOSIN\DOXAZOSIN MESYLATE

REACTIONS (1)
  - Bradycardia [None]

NARRATIVE: CASE EVENT DATE: 20161228
